FAERS Safety Report 4897312-4 (Version None)
Quarter: 2005Q4

REPORT INFORMATION
  Report Type: 
  Country: None (occurrence: None)
  Receive Date: 20051223
  Receipt Date: 20050919
  Transmission Date: 20060501
  Serious: No
  Sender: FDA-Public Use
  Company Number: 05P-163-0311474-00

PATIENT
  Sex: Male
  Weight: 74.3899 kg

DRUGS (10)
  1. HUMIRA [Suspect]
     Indication: RHEUMATOID ARTHRITIS
     Dosage: 40 MG, 1 IN 2 WK, SUBCUTANEOUS
     Route: 058
     Dates: start: 20050919
  2. METHOTREXATE SODIUM [Concomitant]
  3. PREDNISONE [Concomitant]
  4. CELECOXIB [Concomitant]
  5. CITALOPRAM HYDROBROMIDE [Concomitant]
  6. VITAMIN AND MINERAL PRENATAL SUPPLEMENT W/ FOLIC ACID CAP [Concomitant]
  7. FOLIC ACID [Concomitant]
  8. RANITIDINE HYDROCHLORIDE [Concomitant]
  9. MECLIZINE [Concomitant]
  10. ASPIRIN [Concomitant]

REACTIONS (1)
  - INJECTION SITE IRRITATION [None]
